FAERS Safety Report 17719305 (Version 1)
Quarter: 2020Q2

REPORT INFORMATION
  Report Type: Spontaneous
  Country: FR (occurrence: FR)
  Receive Date: 20200428
  Receipt Date: 20200428
  Transmission Date: 20200714
  Serious: Yes (Other)
  Sender: FDA-Public Use
  Company Number: FR-MYLANLABS-2020M1036290

PATIENT
  Age: 25 Year
  Sex: Male
  Weight: 69 kg

DRUGS (2)
  1. METHOTREXATE MYLAN [Suspect]
     Active Substance: METHOTREXATE SODIUM
     Indication: LYMPHADENOPATHY MEDIASTINAL
     Dosage: UNK UNK, QD (27 MARCH TO 31 MARCH, DOSE 5.43 DAILY)
     Route: 042
     Dates: start: 20200327, end: 20200331
  2. METHOTREXATE MYLAN [Suspect]
     Active Substance: METHOTREXATE SODIUM
     Dosage: UNK UNK, QD (UNK (FROM 10 APRIL TO 14 APRIL, DOSE 5.43 DAILY)
     Route: 042
     Dates: start: 20200410

REACTIONS (3)
  - Hypermetabolism [Unknown]
  - Drug level decreased [Unknown]
  - Drug ineffective [Unknown]

NARRATIVE: CASE EVENT DATE: 20200412
